FAERS Safety Report 6023088-3 (Version None)
Quarter: 2008Q4

REPORT INFORMATION
  Report Type: 
  Country: None (occurrence: None)
  Receive Date: 20081230
  Receipt Date: 20081219
  Transmission Date: 20090506
  Serious: Yes (Hospitalization)
  Sender: FDA-Public Use
  Company Number: FR-JNJFOC-20081206022

PATIENT
  Age: 34 Year
  Sex: Female

DRUGS (4)
  1. REMICADE [Suspect]
     Indication: SPONDYLITIS
     Route: 042
  2. REMICADE [Suspect]
     Indication: COLITIS ULCERATIVE
     Dosage: STARTED ABOUT 2.5 YEARS AGO
     Route: 042
  3. CORTICOID [Concomitant]
     Indication: SPONDYLITIS
  4. CORTICOID [Concomitant]
     Indication: COLITIS ULCERATIVE

REACTIONS (1)
  - BREAST CANCER STAGE I [None]
